FAERS Safety Report 9999717 (Version 1)
Quarter: 2014Q1

REPORT INFORMATION
  Report Type: Spontaneous
  Country: US (occurrence: US)
  Receive Date: 20140312
  Receipt Date: 20140312
  Transmission Date: 20141002
  Serious: Yes (Other)
  Sender: FDA-Public Use
  Company Number: US-ASTRAZENECA-2014SE15532

PATIENT
  Age: 60 Year
  Sex: Female

DRUGS (4)
  1. CRESTOR [Suspect]
     Route: 048
  2. NITROFURANTN [Suspect]
     Dosage: 1 PILL
     Route: 065
  3. DIOVAN HCT [Concomitant]
     Dosage: 160/25 FOR PAST 6 OR SEVEN YEARS
  4. VALSARTAN [Concomitant]
     Dates: start: 2013

REACTIONS (5)
  - Blindness transient [Recovered/Resolved]
  - Aphasia [Recovered/Resolved]
  - Bone pain [Unknown]
  - Dyspnoea [Unknown]
  - Lethargy [Unknown]
